FAERS Safety Report 7801833-1 (Version None)
Quarter: 2011Q4

REPORT INFORMATION
  Report Type: 
  Country: None (occurrence: None)
  Receive Date: 20111007
  Receipt Date: 20111006
  Transmission Date: 20120403
  Serious: Yes (Hospitalization, Other)
  Sender: FDA-Public Use
  Company Number: FR-PFIZER INC-033-9033-M0200003

PATIENT
  Age: 81 Year
  Sex: Male

DRUGS (6)
  1. DILTIAZEM HCL [Suspect]
     Route: 048
  2. VALPROATE SODIUM [Suspect]
     Indication: CONVULSION
     Route: 048
  3. TAMSULOSIN HCL [Suspect]
     Route: 048
  4. DIPYRIDAMOLE [Suspect]
     Route: 048
  5. FUROSEMIDE [Suspect]
     Route: 048
  6. PRAZOSIN HCL [Suspect]
     Route: 048

REACTIONS (6)
  - ANAEMIA MACROCYTIC [None]
  - PLATELET COUNT DECREASED [None]
  - DRUG LEVEL DECREASED [None]
  - CONVULSION [None]
  - WHITE BLOOD CELL COUNT DECREASED [None]
  - HYPONATRAEMIA [None]
